FAERS Safety Report 6541350-2 (Version None)
Quarter: 2010Q1

REPORT INFORMATION
  Report Type: 
  Country: None (occurrence: None)
  Receive Date: 20100118
  Receipt Date: 20100107
  Transmission Date: 20100710
  Serious: Yes (Hospitalization, Other)
  Sender: FDA-Public Use
  Company Number: PHEH2009US18527

PATIENT
  Sex: Male
  Weight: 80.6 kg

DRUGS (11)
  1. AFINITOR [Suspect]
     Indication: METASTATIC RENAL CELL CARCINOMA
     Dosage: 10 MG, QD
     Route: 048
     Dates: start: 20091116, end: 20091218
  2. ALPRAZOLAM [Concomitant]
     Dosage: 0.5 MG, BID
     Route: 048
  3. GEMFIBROZIL [Concomitant]
     Dosage: 600 MG, BID
     Route: 048
  4. OMEPRAZOLE [Concomitant]
     Dosage: 20 MG, BID
     Route: 048
  5. SENNA-S (DOCUSATE SODIUM/SENNA ALEXANDRINA) [Concomitant]
     Indication: CONSTIPATION
     Dosage: 1 TAB
     Route: 048
  6. SUCRALFATE [Concomitant]
     Dosage: 10 MG, TID
  7. TEMAZEPAM [Concomitant]
     Indication: INSOMNIA
     Dosage: 15 MG, PRN
     Route: 048
  8. TERAZOSIN HCL [Concomitant]
     Dosage: 5 MG, QD
     Route: 048
  9. TESTOSTERONE [Concomitant]
     Dosage: 1 MG EVERY 6 WEEKS
     Route: 030
  10. TYLENOL (CAPLET) [Concomitant]
     Indication: PAIN
     Dosage: 500 MG, Q4H PRN
     Route: 048
  11. SUTENT [Concomitant]
     Indication: NEOPLASM MALIGNANT
     Dosage: 50 MG, QD, 4 DAYS ON, 4 DAYS OFF
     Route: 048

REACTIONS (21)
  - BLOOD CREATININE INCREASED [None]
  - BLOOD PHOSPHORUS INCREASED [None]
  - BLOOD TRIGLYCERIDES INCREASED [None]
  - CHILLS [None]
  - DRUG INEFFECTIVE [None]
  - DYSPNOEA [None]
  - FATIGUE [None]
  - HAEMATOCRIT DECREASED [None]
  - HAEMOGLOBIN DECREASED [None]
  - HIGH DENSITY LIPOPROTEIN DECREASED [None]
  - LOW DENSITY LIPOPROTEIN INCREASED [None]
  - LUNG INFILTRATION [None]
  - MEAN PLATELET VOLUME INCREASED [None]
  - MUCOSAL INFLAMMATION [None]
  - PNEUMONIA [None]
  - PNEUMONITIS [None]
  - RALES [None]
  - RASH [None]
  - RED BLOOD CELL COUNT DECREASED [None]
  - SKIN LESION [None]
  - URTICARIA [None]
